FAERS Safety Report 25615554 (Version 1)
Quarter: 2025Q3

REPORT INFORMATION
  Report Type: Report from Study
  Country: IN (occurrence: IN)
  Receive Date: 20250729
  Receipt Date: 20250729
  Transmission Date: 20251020
  Serious: Yes (Death)
  Sender: ROCHE
  Company Number: IN-ROCHE-10000349644

PATIENT
  Age: 55 Year
  Sex: Male
  Weight: 61.5 kg

DRUGS (10)
  1. CELLCEPT [Suspect]
     Active Substance: MYCOPHENOLATE MOFETIL
     Indication: Renal transplant
     Route: 048
     Dates: start: 20200604
  2. PREDNISOLONE [Concomitant]
     Active Substance: PREDNISOLONE
     Dates: end: 20250624
  3. PREDNISOLONE [Concomitant]
     Active Substance: PREDNISOLONE
     Dates: end: 20250701
  4. PREDNISOLONE [Concomitant]
     Active Substance: PREDNISOLONE
  5. PREDNISOLONE [Concomitant]
     Active Substance: PREDNISOLONE
  6. SEPTRAN DS [Concomitant]
  7. CILNIDIPINE [Concomitant]
     Active Substance: CILNIDIPINE
  8. TACROLIMUS [Concomitant]
     Active Substance: TACROLIMUS
  9. DILTIAZEM HYDROCHLORIDE [Concomitant]
     Active Substance: DILTIAZEM HYDROCHLORIDE
  10. moxovas [Concomitant]

REACTIONS (7)
  - Death [Fatal]
  - Asthenia [Unknown]
  - Weight decreased [Unknown]
  - Peripheral swelling [Unknown]
  - Skin lesion [Unknown]
  - Pruritus [Unknown]
  - Back pain [Unknown]
